FAERS Safety Report 8765593 (Version 1)
Quarter: 2012Q4

REPORT INFORMATION
  Report Type: 
  Country: FR (occurrence: FR)
  Receive Date: 20120903
  Receipt Date: 20120903
  Transmission Date: 20130627
  Serious: Yes (Hospitalization)
  Sender: FDA-Public Use
  Company Number: FR-AMGEN-FRASP2012054797

PATIENT
  Age: 68 Year
  Sex: Male

DRUGS (5)
  1. MIMPARA [Suspect]
     Indication: HYPERPARATHYROIDISM SECONDARY
     Dosage: 160 mg, qd
     Route: 048
     Dates: start: 201112, end: 20120715
  2. ATACAND [Concomitant]
     Route: 048
  3. SOTALEX [Concomitant]
     Route: 048
  4. SOLUPRED                           /00016201/ [Concomitant]
  5. XATRAL [Concomitant]
     Route: 048

REACTIONS (3)
  - Weight decreased [Recovering/Resolving]
  - Decreased appetite [Recovered/Resolved]
  - Vomiting [Recovered/Resolved]
